FAERS Safety Report 7691837-4 (Version None)
Quarter: 2011Q3

REPORT INFORMATION
  Report Type: 
  Country: None (occurrence: None)
  Receive Date: 20110815
  Receipt Date: 20110803
  Transmission Date: 20111222
  Serious: Yes (Hospitalization, Other)
  Sender: FDA-Public Use
  Company Number: 120913

PATIENT
  Age: 58 Year
  Sex: Female

DRUGS (1)
  1. LORAZEPAM [Suspect]
     Dosage: 28MG

REACTIONS (10)
  - CHILLS [None]
  - PSYCHOMOTOR HYPERACTIVITY [None]
  - MEDICATION ERROR [None]
  - HYPERHIDROSIS [None]
  - GASTROINTESTINAL SOUNDS ABNORMAL [None]
  - OESOPHAGEAL OBSTRUCTION [None]
  - OESOPHAGEAL ULCER [None]
  - NYSTAGMUS [None]
  - MYOCLONUS [None]
  - BEZOAR [None]
